FAERS Safety Report 7909899-5 (Version None)
Quarter: 2011Q4

REPORT INFORMATION
  Report Type: 
  Country: None (occurrence: None)
  Receive Date: 20111111
  Receipt Date: 20111025
  Transmission Date: 20120403
  Serious: Yes (Other)
  Sender: FDA-Public Use
  Company Number: DE-ROCHE-1007712

PATIENT
  Age: 34 Year
  Sex: Female

DRUGS (3)
  1. RITUXIMAB [Suspect]
     Indication: PEMPHIGUS
  2. AZATHIOPRINE [Concomitant]
  3. DEXAMETHASONE [Concomitant]

REACTIONS (2)
  - HYPOTONIA [None]
  - VOMITING [None]
